FAERS Safety Report 7543077-7 (Version None)
Quarter: 2011Q2

REPORT INFORMATION
  Report Type: 
  Country: None (occurrence: None)
  Receive Date: 20110613
  Receipt Date: 20110602
  Transmission Date: 20111010
  Serious: Yes (Other)
  Sender: FDA-Public Use
  Company Number: PHHY2011US33568

PATIENT
  Sex: Female

DRUGS (2)
  1. MIACALCIN [Suspect]
     Dosage: ONCE IN A DAY
     Route: 045
  2. DIOVAN [Concomitant]
     Dosage: UNK

REACTIONS (2)
  - AGEUSIA [None]
  - ANOSMIA [None]
